FAERS Safety Report 8926812 (Version 4)
Quarter: 2013Q2

REPORT INFORMATION
  Report Type: Report from Study
  Country: AU (occurrence: AU)
  Receive Date: 20121127
  Receipt Date: 20130621
  Transmission Date: 20140414
  Serious: Yes (Hospitalization)
  Sender: FDA-Public Use
  Company Number: AU-MERCK-1211AUS008915

PATIENT
  Age: 69 Year
  Sex: Male
  Weight: 83.2 kg

DRUGS (10)
  1. SIMVASTATIN [Suspect]
     Indication: ACUTE CORONARY SYNDROME
     Dosage: ONE 40MG TABLET, ONCE DAILY IN THE EVENING
     Route: 048
     Dates: start: 20061206, end: 20070807
  2. VYTORIN [Concomitant]
     Dosage: 10/40 MG TOTAL DAILY DOSE
     Route: 048
     Dates: start: 20070816
  3. PANTOPRAZOLE [Concomitant]
     Dosage: TOTAL DAILY DOSE 40MG
     Route: 048
     Dates: start: 20060112
  4. ASPIRIN [Concomitant]
     Dosage: TOTAL DAILY DOSE 100MG
     Route: 048
     Dates: start: 20061204, end: 20090317
  5. CITALOPRAM [Concomitant]
     Dosage: 20 MG DAILY
     Route: 048
     Dates: start: 20071218, end: 20100503
  6. ACETAMINOPHEN [Concomitant]
     Dosage: VARIALBLE
     Route: 048
     Dates: start: 20070101
  7. IRBESARTAN [Concomitant]
     Dosage: TOTAL DAILY DOSE 150MG
     Route: 048
     Dates: start: 20081218
  8. METOPROLOL SUCCINATE [Concomitant]
     Dosage: 95 MG DAILY
     Route: 048
     Dates: start: 20081218
  9. ESOMEPRAZOLE [Concomitant]
     Dosage: TOTAL DAILY DOSE 40MG
     Route: 048
     Dates: start: 20081218, end: 20081229
  10. METOPROLOL [Concomitant]
     Dosage: UNK
     Route: 048
     Dates: start: 20081218

REACTIONS (3)
  - Colon cancer [Recovered/Resolved]
  - Large intestine polyp [Recovered/Resolved]
  - Large intestine polyp [Recovered/Resolved]
